FAERS Safety Report 6932632-0 (Version None)
Quarter: 2010Q3

REPORT INFORMATION
  Report Type: 
  Country: None (occurrence: None)
  Receive Date: 20100817
  Receipt Date: 20100805
  Transmission Date: 20110219
  Serious: Yes (Hospitalization, Other)
  Sender: FDA-Public Use
  Company Number: 013323

PATIENT
  Sex: Female
  Weight: 65.3 kg

DRUGS (12)
  1. CERTOLIZUMAB PEGOL [Suspect]
     Indication: CROHN'S DISEASE
     Dosage: 400 MG 1X/2 WEEKS SUBCUTANEOUS), 400 MG 1X/MONTH, SUBCUTANEOUS
     Route: 058
     Dates: start: 20081125, end: 20081201
  2. CERTOLIZUMAB PEGOL [Suspect]
     Indication: CROHN'S DISEASE
     Dosage: 400 MG 1X/2 WEEKS SUBCUTANEOUS), 400 MG 1X/MONTH, SUBCUTANEOUS
     Route: 058
     Dates: start: 20090101
  3. POTASSIUM [Concomitant]
  4. ADDERALL 10 [Concomitant]
  5. DEPAKOTE [Concomitant]
  6. REMERON [Concomitant]
  7. BENADRYL [Concomitant]
  8. KENALOG [Concomitant]
  9. CETAPHIL [Concomitant]
  10. FLONASE [Concomitant]
  11. CLARITIN [Concomitant]
  12. ZITHROMAX [Concomitant]

REACTIONS (7)
  - ANAEMIA [None]
  - COUGH [None]
  - CROHN'S DISEASE [None]
  - HAEMATOCHEZIA [None]
  - HYPOKALAEMIA [None]
  - UPPER RESPIRATORY TRACT INFECTION [None]
  - VOMITING [None]
